FAERS Safety Report 4538291-9 (Version None)
Quarter: 2004Q4

REPORT INFORMATION
  Report Type: 
  Country: None (occurrence: None)
  Receive Date: 20041223
  Receipt Date: 20041223
  Transmission Date: 20050328
  Serious: Yes (Other)
  Sender: FDA-Public Use
  Company Number: None

PATIENT
  Age: 38 Year
  Sex: Male
  Weight: 125.6464 kg

DRUGS (5)
  1. PAROXETINE HCL [Suspect]
     Indication: ANXIETY
     Dosage: 20 MG DAILY
     Dates: start: 20030901
  2. PAROXETINE HCL [Suspect]
     Indication: ANXIETY
     Dosage: 20 MG DAILY
     Dates: start: 20031001
  3. ZANTAC [Concomitant]
  4. NAPROXEN [Concomitant]
  5. TRIAMCINOLONE [Concomitant]

REACTIONS (2)
  - ANGER [None]
  - PHARMACEUTICAL PRODUCT COMPLAINT [None]
